FAERS Safety Report 16761011 (Version 6)
Quarter: 2020Q4

REPORT INFORMATION
  Report Type: Spontaneous
  Country: PT (occurrence: PT)
  Receive Date: 20190830
  Receipt Date: 20201027
  Transmission Date: 20210113
  Serious: Yes (Death, Life-Threatening, Hospitalization, Disabling, Other)
  Sender: FDA-Public Use
  Company Number: PT-PFIZER INC-2019369431

PATIENT
  Age: 68 Year
  Sex: Male

DRUGS (1)
  1. XELJANZ [Suspect]
     Active Substance: TOFACITINIB CITRATE
     Indication: RHEUMATOID ARTHRITIS
     Dosage: 5 MG, 2X/DAY
     Route: 048
     Dates: start: 20190624, end: 20190708

REACTIONS (23)
  - Cerebellar infarction [Fatal]
  - Septic shock [Fatal]
  - Peritonitis [Fatal]
  - Rheumatoid arthritis [Unknown]
  - Pain [Unknown]
  - Malaise [Unknown]
  - Wound infection [Unknown]
  - Insulin-requiring type 2 diabetes mellitus [Unknown]
  - Localised infection [Unknown]
  - Dyspnoea [Unknown]
  - Intestinal perforation [Fatal]
  - Renal failure [Unknown]
  - Staphylococcal sepsis [Unknown]
  - Pulmonary embolism [Unknown]
  - Cerebrovascular accident [Unknown]
  - Cerebellar embolism [Fatal]
  - Pneumonia [Fatal]
  - Multiple organ dysfunction syndrome [Fatal]
  - Infection [Unknown]
  - Systemic candida [Unknown]
  - Atrial fibrillation [Unknown]
  - Oedema peripheral [Unknown]
  - Mental disorder [Unknown]

NARRATIVE: CASE EVENT DATE: 2019
